FAERS Safety Report 5846436-3 (Version None)
Quarter: 2008Q3

REPORT INFORMATION
  Report Type: 
  Country: None (occurrence: None)
  Receive Date: 20080815
  Receipt Date: 20080802
  Transmission Date: 20090109
  Serious: Yes (Other)
  Sender: FDA-Public Use
  Company Number: US-BAYER-200823912GPV

PATIENT
  Age: 32 Year
  Sex: Male

DRUGS (1)
  1. FLUDARABINE PHOSPHATE [Suspect]
     Indication: ACUTE MYELOID LEUKAEMIA
     Route: 065

REACTIONS (6)
  - BLINDNESS [None]
  - ENCEPHALOPATHY [None]
  - MENTAL STATUS CHANGES [None]
  - MUSCLE SPASTICITY [None]
  - OPTIC NEURITIS [None]
  - URINARY INCONTINENCE [None]
